FAERS Safety Report 6958404-9 (Version None)
Quarter: 2010Q3

REPORT INFORMATION
  Report Type: 
  Country: None (occurrence: None)
  Receive Date: 20100831
  Receipt Date: 20100820
  Transmission Date: 20110219
  Serious: Yes (Other)
  Sender: FDA-Public Use
  Company Number: US-WYE-H17106110

PATIENT
  Sex: Male
  Weight: 80 kg

DRUGS (15)
  1. BENEFIX [Suspect]
     Indication: FACTOR IX DEFICIENCY
     Dosage: 4000 TO 4200 UNITS ON AN UNKNOWN DATE WITH ^CYCLIC^ FREQUENCY
     Route: 042
  2. BENEFIX [Suspect]
     Dosage: 4000 TO 4200 UNITS EVERY 12 HOURS
     Route: 042
     Dates: start: 20100806, end: 20100814
  3. COLECALCIFEROL [Concomitant]
     Dosage: UNKNOWN
  4. FOLIC ACID [Concomitant]
     Dosage: UNKNOWN
  5. FUROSEMIDE [Concomitant]
     Dosage: UNKNOWN
  6. INSULIN ASPART [Concomitant]
     Dosage: 70/30 AT UNKNOWN DOSE
  7. THIAMINE HCL [Concomitant]
     Dosage: UNKNOWN
  8. FERROUS SULFATE [Concomitant]
     Dosage: UNKNOWN
  9. LACTULOSE [Concomitant]
     Dosage: UNKNOWN
  10. OMEPRAZOLE [Concomitant]
     Dosage: UNKNOWN
  11. PROPRANOLOL [Concomitant]
     Dosage: UNKNOWN
  12. RIFAXIMIN [Concomitant]
     Dosage: UNKNOWN
  13. SPIRONOLACTONE [Concomitant]
     Dosage: UNKNOWN
  14. CALCIUM PANTOTHENATE/NICOTINAMIDE/PYRIDOXINE HYDROCHLORIDE/RIBOFLAVIN/ [Concomitant]
     Dosage: UNKNOWN
  15. INSULIN GLARGINE [Concomitant]
     Dosage: UNKNOWN

REACTIONS (2)
  - DRUG ADMINISTRATION ERROR [None]
  - DRUG INEFFECTIVE [None]
